FAERS Safety Report 14778615 (Version 1)
Quarter: 2018Q2

REPORT INFORMATION
  Report Type: Spontaneous
  Country: US (occurrence: US)
  Receive Date: 20180419
  Receipt Date: 20180419
  Transmission Date: 20180711
  Serious: Yes (Hospitalization)
  Sender: FDA-Public Use
  Company Number: US-SUNOVION-2018SUN001445

PATIENT
  Age: 28 Year
  Sex: Female

DRUGS (5)
  1. LAMICTAL [Concomitant]
     Active Substance: LAMOTRIGINE
     Indication: AFFECTIVE DISORDER
     Dosage: 200 MG, QAM
     Route: 048
  2. LATUDA [Suspect]
     Active Substance: LURASIDONE HYDROCHLORIDE
     Indication: SCHIZOPHRENIA
     Dosage: 60 MG, HS
     Route: 048
     Dates: end: 201804
  3. KEFLEX [Concomitant]
     Active Substance: CEPHALEXIN
     Dosage: 500 MG, UNK
  4. LATUDA [Suspect]
     Active Substance: LURASIDONE HYDROCHLORIDE
     Indication: BIPOLAR I DISORDER
     Dosage: 80 MG, QD
     Route: 048
     Dates: start: 201804
  5. ZYPREXA [Suspect]
     Active Substance: OLANZAPINE

REACTIONS (7)
  - Hallucination, auditory [Unknown]
  - Urinary tract infection [Unknown]
  - Extra dose administered [Unknown]
  - Restless legs syndrome [Unknown]
  - Akathisia [Unknown]
  - Hallucination, visual [Unknown]
  - Tremor [Unknown]

NARRATIVE: CASE EVENT DATE: 20180408
